FAERS Safety Report 4300437-5 (Version None)
Quarter: 2004Q1

REPORT INFORMATION
  Report Type: 
  Country: None (occurrence: None)
  Receive Date: 20040218
  Receipt Date: 20040213
  Transmission Date: 20041129
  Serious: Yes (Hospitalization, Other)
  Sender: FDA-Public Use
  Company Number: FRWYE506313JAN04

PATIENT
  Age: 12 Month
  Sex: Female

DRUGS (7)
  1. TAZOCILLINE (PIPERACILLIN/TAZOBACTAM, INJECTION) [Suspect]
     Indication: CYSTIC FIBROSIS
     Dosage: 800 MG 3X PER 1 DAY, INTRAVENOUS
     Route: 042
     Dates: start: 20030920, end: 20030923
  2. CREON [Concomitant]
  3. UVESTEROL (ASCORBIC ACID/ERGOCALCIFEROL/RETINOL/TOCOPHEROL) [Concomitant]
  4. PHYTONADIONE [Concomitant]
  5. SODIUM CHLORIDE 0.9% [Concomitant]
  6. NEBCINE (TOBRAMYCIN SULFATE) [Concomitant]
  7. PULMICORT [Concomitant]

REACTIONS (4)
  - ACCIDENTAL OVERDOSE [None]
  - DIARRHOEA [None]
  - HYPERTHERMIA [None]
  - MEDICATION ERROR [None]
